FAERS Safety Report 7646315-5 (Version None)
Quarter: 2011Q3

REPORT INFORMATION
  Report Type: 
  Country: None (occurrence: None)
  Receive Date: 20110725
  Receipt Date: 20110707
  Transmission Date: 20111222
  Serious: Yes (Death)
  Sender: FDA-Public Use
  Company Number: AUR-APL-2011-04026

PATIENT
  Age: 20 Year
  Sex: Male

DRUGS (4)
  1. CITALOPRAM HYDROBROMIDE [Suspect]
     Indication: PRODUCT USED FOR UNKNOWN INDICATION
     Dates: start: 20080101
  2. OXYCODONE HCL [Suspect]
     Indication: PRODUCT USED FOR UNKNOWN INDICATION
     Dates: start: 20080101
  3. TRAMADOL HCL [Suspect]
     Indication: PRODUCT USED FOR UNKNOWN INDICATION
     Dates: start: 20080101
  4. ACETAMINOPHEN W/ CODEINE [Suspect]
     Indication: PRODUCT USED FOR UNKNOWN INDICATION
     Dates: start: 20080101

REACTIONS (4)
  - RESPIRATORY ARREST [None]
  - DRUG ABUSE [None]
  - CARDIAC ARREST [None]
  - TOXICITY TO VARIOUS AGENTS [None]
